FAERS Safety Report 7039466-X (Version None)
Quarter: 2010Q4

REPORT INFORMATION
  Report Type: 
  Country: None (occurrence: None)
  Receive Date: 20101012
  Receipt Date: 20101004
  Transmission Date: 20110411
  Serious: Yes (Other)
  Sender: FDA-Public Use
  Company Number: US-ROCHE-730867

PATIENT

DRUGS (2)
  1. PEGINTERFERON ALFA-2A [Suspect]
     Route: 058
  2. RIBAVIRIN [Suspect]
     Dosage: DOSE REPORTED: 800-1200 MG PER DAY IN DIVIDED DOSES
     Route: 048

REACTIONS (15)
  - ANAEMIA [None]
  - CHEST PAIN [None]
  - COUGH [None]
  - DEPRESSION [None]
  - DYSPNOEA [None]
  - FATIGUE [None]
  - HEADACHE [None]
  - HEPATIC NEOPLASM MALIGNANT [None]
  - HEPATITIS C [None]
  - INSOMNIA [None]
  - NAUSEA [None]
  - NEUTROPENIA [None]
  - PYREXIA [None]
  - THROMBOCYTOPENIA [None]
  - VOMITING [None]
